FAERS Safety Report 8115072-0 (Version None)
Quarter: 2012Q1

REPORT INFORMATION
  Report Type: 
  Country: None (occurrence: None)
  Receive Date: 20120131
  Receipt Date: 20120123
  Transmission Date: 20120608
  Serious: Yes (Hospitalization)
  Sender: FDA-Public Use
  Company Number: 2012SP004132

PATIENT
  Age: 56 Year
  Sex: Female

DRUGS (2)
  1. TOPAMAX [Concomitant]
  2. ASMANEX TWISTHALER [Suspect]
     Indication: ASTHMA
     Dosage: 2 DF;BID;INH
     Route: 055
     Dates: start: 20110101, end: 20111214

REACTIONS (4)
  - RESPIRATORY FAILURE [None]
  - CONDITION AGGRAVATED [None]
  - ASTHMA [None]
  - FOOT FRACTURE [None]
